FAERS Safety Report 20501890 (Version 2)
Quarter: 2022Q1

REPORT INFORMATION
  Report Type: Spontaneous
  Country: HT (occurrence: HT)
  Receive Date: 20220222
  Receipt Date: 20220314
  Transmission Date: 20220423
  Serious: Yes (Death, Hospitalization, Other)
  Sender: FDA-Public Use
  Company Number: HN-NOVARTISPH-NVSC2022HT040037

PATIENT
  Age: 36 Year
  Sex: Male

DRUGS (3)
  1. GLIVEC [Suspect]
     Active Substance: IMATINIB MESYLATE
     Indication: Chronic myeloid leukaemia
     Dosage: 400 MG, QD
     Route: 048
     Dates: start: 2018
  2. GLIVEC [Suspect]
     Active Substance: IMATINIB MESYLATE
     Dosage: 400 MG, QD
     Route: 048
     Dates: start: 20201007, end: 20211207
  3. IRON [Concomitant]
     Active Substance: IRON
     Indication: Product used for unknown indication
     Dosage: 325 MG, BID
     Route: 065
     Dates: end: 202201

REACTIONS (8)
  - COVID-19 [Fatal]
  - Cough [Fatal]
  - Dyspnoea [Fatal]
  - Headache [Fatal]
  - Circulatory collapse [Fatal]
  - Acute kidney injury [Unknown]
  - Thrombocytopenia [Unknown]
  - Sepsis [Unknown]

NARRATIVE: CASE EVENT DATE: 20211207
